FAERS Safety Report 8575463-0 (Version None)
Quarter: 2012Q3

REPORT INFORMATION
  Report Type: 
  Country: None (occurrence: None)
  Receive Date: 20120807
  Receipt Date: 20120801
  Transmission Date: 20120928
  Serious: Yes (Other)
  Sender: FDA-Public Use
  Company Number: PHEH2010US03423

PATIENT
  Sex: Female

DRUGS (18)
  1. NEULASTA [Concomitant]
  2. FLUOROURACIL [Concomitant]
  3. ATIVAN [Concomitant]
  4. DEXAMETHASONE [Concomitant]
  5. AVASTIN [Concomitant]
  6. AMBIEN [Concomitant]
     Indication: SLEEP DISORDER
  7. VINORELBINE [Concomitant]
  8. SENNA-MINT WAF [Concomitant]
  9. AREDIA [Suspect]
  10. LEUCOVORIN CALCIUM [Concomitant]
  11. ZOMETA [Suspect]
  12. FEMARA [Concomitant]
  13. HEPARIN SODIUM [Concomitant]
  14. ONDANSETRON [Concomitant]
  15. RADIATION [Concomitant]
  16. GEMCITABINE HYDROCHLORIDE [Concomitant]
  17. HERCEPTIN [Concomitant]
  18. PACLITAXEL [Concomitant]

REACTIONS (40)
  - PLEURAL EFFUSION [None]
  - PNEUMONIA [None]
  - CHEST WALL NECROSIS [None]
  - CELLULITIS [None]
  - NAUSEA [None]
  - ANXIETY [None]
  - ANAEMIA [None]
  - GAMMA-GLUTAMYLTRANSFERASE INCREASED [None]
  - EYELID PTOSIS [None]
  - LETHARGY [None]
  - OBESITY [None]
  - VISUAL IMPAIRMENT [None]
  - MUSCULAR WEAKNESS [None]
  - FATIGUE [None]
  - DEAFNESS UNILATERAL [None]
  - RADIATION OESOPHAGITIS [None]
  - OSTEOPOROSIS [None]
  - MULTIPLE INJURIES [None]
  - ANHEDONIA [None]
  - BREAST CANCER METASTATIC [None]
  - LYMPHOEDEMA [None]
  - ALOPECIA [None]
  - VOMITING [None]
  - BLOOD ALKALINE PHOSPHATASE INCREASED [None]
  - DIZZINESS [None]
  - DENTAL CARIES [None]
  - CONFUSIONAL STATE [None]
  - PAIN [None]
  - SKIN MASS [None]
  - MEMORY IMPAIRMENT [None]
  - DYSPHONIA [None]
  - OSTEONECROSIS OF JAW [None]
  - PINEAL GLAND CYST [None]
  - DEPRESSION [None]
  - OEDEMA PERIPHERAL [None]
  - SKIN LESION [None]
  - SKIN HAEMORRHAGE [None]
  - SPLENOMEGALY [None]
  - ASPARTATE AMINOTRANSFERASE INCREASED [None]
  - FALL [None]
